FAERS Safety Report 7577127-9 (Version None)
Quarter: 2011Q2

REPORT INFORMATION
  Report Type: 
  Country: None (occurrence: None)
  Receive Date: 20110624
  Receipt Date: 20110624
  Transmission Date: 20111010
  Serious: Yes (Hospitalization)
  Sender: FDA-Public Use
  Company Number: None

PATIENT
  Age: 57 Year
  Sex: Male
  Weight: 81.1939 kg

DRUGS (1)
  1. LIPITOR [Suspect]
     Dosage: 10MG 1/DAY PO
     Route: 048

REACTIONS (2)
  - AMNESIA [None]
  - DISORIENTATION [None]
